FAERS Safety Report 18151120 (Version 7)
Quarter: 2021Q3

REPORT INFORMATION
  Report Type: Spontaneous
  Country: US (occurrence: US)
  Receive Date: 20200814
  Receipt Date: 20210902
  Transmission Date: 20211014
  Serious: No
  Sender: FDA-Public Use
  Company Number: US-PFIZER INC-2020310002

PATIENT
  Age: 51 Year
  Sex: Male

DRUGS (1)
  1. XELJANZ [Suspect]
     Active Substance: TOFACITINIB CITRATE
     Indication: COLITIS ULCERATIVE
     Dosage: 5 MG, 2X/DAY
     Route: 048
     Dates: start: 201908

REACTIONS (2)
  - Product dose omission issue [Unknown]
  - Frequent bowel movements [Recovering/Resolving]

NARRATIVE: CASE EVENT DATE: 202107
